FAERS Safety Report 8444504-3 (Version None)
Quarter: 2012Q2

REPORT INFORMATION
  Report Type: 
  Country: None (occurrence: None)
  Receive Date: 20120612
  Receipt Date: 20120612
  Transmission Date: 20120825
  Serious: Yes (Other)
  Sender: FDA-Public Use
  Company Number: None

PATIENT
  Sex: Female
  Weight: 81.6475 kg

DRUGS (3)
  1. ZIPRASIDONE HCL [Suspect]
     Indication: OBSESSIVE-COMPULSIVE DISORDER
     Dosage: 80 TWICE TABS WITH DINNER
  2. ZIPRASIDONE HCL [Suspect]
     Indication: MAJOR DEPRESSION
     Dosage: 80 TWICE TABS WITH DINNER
  3. ZIPRASIDONE HCL [Suspect]
     Indication: BORDERLINE PERSONALITY DISORDER
     Dosage: 80 TWICE TABS WITH DINNER

REACTIONS (4)
  - PRODUCT SUBSTITUTION ISSUE [None]
  - PARANOIA [None]
  - DELUSION [None]
  - AGITATION [None]
